FAERS Safety Report 7435059-0 (Version None)
Quarter: 2011Q2

REPORT INFORMATION
  Report Type: 
  Country: None (occurrence: None)
  Receive Date: 20110425
  Receipt Date: 20110412
  Transmission Date: 20111010
  Serious: Yes (Hospitalization)
  Sender: FDA-Public Use
  Company Number: PHHY2011IT30451

PATIENT
  Sex: Male

DRUGS (2)
  1. TAREG [Suspect]
     Indication: HYPERTENSION
     Dosage: 80 MG, DAILY
     Route: 048
     Dates: start: 20080101, end: 20110221
  2. CIPROXIN [Suspect]
     Indication: TRACHEITIS
     Dosage: 500 MG, DAILY
     Route: 048
     Dates: start: 20110210, end: 20110213

REACTIONS (1)
  - JAUNDICE CHOLESTATIC [None]
